FAERS Safety Report 7963485-X (Version None)
Quarter: 2011Q4

REPORT INFORMATION
  Report Type: 
  Country: None (occurrence: None)
  Receive Date: 20111208
  Receipt Date: 20111121
  Transmission Date: 20120403
  Serious: No
  Sender: FDA-Public Use
  Company Number: US-BAYER-2011-113920

PATIENT
  Age: 57 Year
  Sex: Female
  Weight: 66 kg

DRUGS (8)
  1. ALLEGRA [Concomitant]
  2. LEXAPRO [Concomitant]
  3. FISH OIL [Concomitant]
  4. MULTI-VITAMINS [Concomitant]
  5. CALCIUM CARBONATE [Concomitant]
  6. VITAMIN E [Concomitant]
  7. ALEVE (CAPLET) [Suspect]
     Indication: BACK PAIN
     Dosage: 1 DF, PRN
     Route: 048
     Dates: start: 20111118, end: 20111119
  8. DAIRY EASE [Concomitant]

REACTIONS (2)
  - BACK PAIN [None]
  - HEADACHE [None]
